FAERS Safety Report 17827338 (Version 1)
Quarter: 2020Q2

REPORT INFORMATION
  Report Type: Spontaneous
  Country: PL (occurrence: PL)
  Receive Date: 20200527
  Receipt Date: 20200527
  Transmission Date: 20200714
  Serious: Yes (Other)
  Sender: FDA-Public Use
  Company Number: PL-TERSERA THERAPEUTICS LLC-2020TRS001369

PATIENT

DRUGS (3)
  1. GOSERELIN [Suspect]
     Active Substance: GOSERELIN
     Indication: HORMONE-REFRACTORY PROSTATE CANCER
     Dosage: UNK
     Route: 058
     Dates: start: 20110309
  2. BICALUTAMIDE. [Suspect]
     Active Substance: BICALUTAMIDE
     Indication: HORMONE-REFRACTORY PROSTATE CANCER
     Dosage: UNK
     Route: 048
     Dates: start: 20110315, end: 20150213
  3. ABIRATERONE ACETATE. [Concomitant]
     Active Substance: ABIRATERONE ACETATE
     Indication: PRODUCT USED FOR UNKNOWN INDICATION
     Dosage: UNK
     Route: 065
     Dates: start: 201503

REACTIONS (1)
  - Malignant neoplasm progression [Unknown]
